FAERS Safety Report 5605624-1 (Version None)
Quarter: 2008Q1

REPORT INFORMATION
  Report Type: 
  Country: None (occurrence: None)
  Receive Date: 20080123
  Receipt Date: 20080123
  Transmission Date: 20080703
  Serious: Yes (Hospitalization, Other)
  Sender: FDA-Public Use
  Company Number: None

PATIENT
  Age: 75 Year
  Sex: Female
  Weight: 48.0813 kg

DRUGS (2)
  1. LAMICTAL [Suspect]
     Dosage: 1 TABLET 2 TIMES A DAY PO
     Route: 048
     Dates: start: 20071101, end: 20071212
  2. PHENYTOIN SODIUM [Suspect]
     Indication: CONVULSION
     Dosage: 1 TABLE 3 TIMES A DAY PO
     Route: 048
     Dates: start: 20070213, end: 20071101

REACTIONS (3)
  - CHEST PAIN [None]
  - SOMNOLENCE [None]
  - STEVENS-JOHNSON SYNDROME [None]
